FAERS Safety Report 9190323 (Version 2)
Quarter: 2013Q2

REPORT INFORMATION
  Report Type: Spontaneous
  Country: US (occurrence: None)
  Receive Date: 20120703
  Receipt Date: 20121031
  Transmission Date: 20140414
  Serious: No
  Sender: FDA-Public Use
  Company Number: PHEH2012US005934

PATIENT
  Age: 51 Year
  Sex: Female
  Weight: 85.3 kg

DRUGS (29)
  1. GILENYA [Suspect]
     Route: 048
  2. LASIX (FUROSEMIDE) TABLET, 20 MG [Concomitant]
  3. BUMEX (BUMETANIDE) TABLET, 1 MG [Concomitant]
  4. POTASSIUM (POTASSIUM) TABLET [Concomitant]
  5. TRILEPTAL (OXCARBAZEPINE) TABLET [Concomitant]
  6. RITALIN (METHYLPHENDATE HYDROCHLORIDE) TABLET [Concomitant]
  7. FLORINEF (FLUDROCORTISONE ACETATE) TABLET 0.1 MG [Concomitant]
  8. CORTEF /CAN/ (HYDROCORTISONE ACETATE) TABLET 5 MG [Concomitant]
  9. MIDODRINE (MODODRINE) TABLET 5 MG [Concomitant]
  10. LIPITOR /NET/ (ATORVASTATIN CALCIUM) TABLET 80 MG [Concomitant]
  11. EFEXOR XR  (VENLAFAXINE) CAPSULE, 150 MG [Concomitant]
  12. PAXIL (PAROXETINE HYDROCHLORIDE) TABLET 30 MG [Concomitant]
  13. ABILIFY (ARIPRAZOLE) TABLET 30 MG [Concomitant]
  14. BUSPAR (BUSPIRONE HYDROCHLORIDE) TABLET, 5 MG [Concomitant]
  15. MYSOLINE ^ASTRA^ (PRIMDONE) TABLET, 50 MG [Concomitant]
  16. OXYCONTIN (OXYCODONE HYDROCHLORIDE) TABLET, 80 MG [Concomitant]
  17. ZANAFLEX (TIZANIDINE HYDROCHLORIDE) TABLET, 2 MG [Concomitant]
  18. LODINE (ETODOLAC) CAPSULE, 300 MG [Concomitant]
  19. VALIUM (DIAZEPAM) TABLET, 5 MG [Concomitant]
  20. PREDNISONE (PREDNISONE) TABLET, 5 MG [Concomitant]
  21. TOVIAZ (FESOTERODINE FUMARATE) TABLET, 8 MG [Concomitant]
  22. BACLOFEN (BACLOFEN) TABLET, 10 MG [Concomitant]
  23. STOOL SOFTENER (DOCUSATE SODIUM) CAPSULE [Concomitant]
  24. RESTORIL (TEMAZEPAM) CAPSULE, 15 MG [Concomitant]
  25. CENESTIN (ESTROGENS CONJUGATED) TABLET, 0.3 MG [Concomitant]
  26. PERCOCET (OXYCODONE HYDROCHLORIDE, PARACETAMOL) TABLET [Concomitant]
  27. VICODIN (HYDROCODONE BITARTRATE,PARACETAMOL) TABLET [Concomitant]
  28. GABAPENTIN (GABAPENTIN) [Concomitant]
  29. ADIPEX (PHENTERMINE) [Concomitant]

REACTIONS (11)
  - Vision blurred [None]
  - Asthenia [None]
  - Gait disturbance [None]
  - Oedema peripheral [None]
  - Muscle spasms [None]
  - Joint swelling [None]
  - Swelling face [None]
  - Local swelling [None]
  - Hyperaesthesia [None]
  - Pain in extremity [None]
  - Multiple sclerosis relapse [None]
